FAERS Safety Report 23776655 (Version 1)
Quarter: 2024Q2

REPORT INFORMATION
  Report Type: Spontaneous
  Country: US (occurrence: US)
  Receive Date: 20240424
  Receipt Date: 20240424
  Transmission Date: 20240716
  Serious: No
  Sender: FDA-Public Use
  Company Number: US-BIOVITRUM-2024-US-006088

PATIENT
  Age: 72 Year
  Sex: Female

DRUGS (1)
  1. VONJO [Suspect]
     Active Substance: PACRITINIB
     Indication: Myeloproliferative neoplasm
     Dosage: TWICE DAILY
     Route: 048

REACTIONS (4)
  - Chest pain [Unknown]
  - Mental status changes [Unknown]
  - Nausea [Unknown]
  - Intentional product misuse [Recovered/Resolved]
